FAERS Safety Report 21249192 (Version 2)
Quarter: 2022Q4

REPORT INFORMATION
  Report Type: Spontaneous
  Country: US (occurrence: US)
  Receive Date: 20220824
  Receipt Date: 20221122
  Transmission Date: 20230113
  Serious: No
  Sender: FDA-Public Use
  Company Number: US-JNJFOC-20220835622

PATIENT
  Sex: Female
  Weight: 54.480 kg

DRUGS (1)
  1. IMODIUM [Suspect]
     Active Substance: LOPERAMIDE HYDROCHLORIDE
     Indication: Bowel movement irregularity
     Route: 065

REACTIONS (2)
  - Product packaging issue [Unknown]
  - Wrong technique in product usage process [Unknown]
